FAERS Safety Report 4575380-7 (Version None)
Quarter: 2005Q1

REPORT INFORMATION
  Report Type: 
  Country: None (occurrence: None)
  Receive Date: 20050131
  Receipt Date: 20050131
  Transmission Date: 20050727
  Serious: No
  Sender: FDA-Public Use
  Company Number: None

PATIENT
  Sex: Male
  Weight: 30.8446 kg

DRUGS (6)
  1. JR. TYLENOL   BUBBLEGUM BURST MELTAWAY TABS [Suspect]
     Indication: HEADACHE
     Dosage: 2 TABLETS    5 HR INTERVAL   ORAL
     Route: 048
     Dates: start: 20041210, end: 20041211
  2. JR. TYLENOL   BUBBLEGUM BURST MELTAWAY TABS [Suspect]
     Indication: PAIN
     Dosage: 2 TABLETS    5 HR INTERVAL   ORAL
     Route: 048
     Dates: start: 20041210, end: 20041211
  3. JR. TYLENOL   BUBBLEGUM BURST MELTAWAY TABS [Suspect]
     Indication: PYREXIA
     Dosage: 2 TABLETS    5 HR INTERVAL   ORAL
     Route: 048
     Dates: start: 20041210, end: 20041211
  4. JR. TYLENOL   BUBBLEGUM BURST MELTAWAY TABS [Suspect]
     Indication: HEADACHE
     Dosage: 2 TABLETS    5 HR INTERVAL   ORAL
     Route: 048
     Dates: start: 20050124, end: 20050126
  5. JR. TYLENOL   BUBBLEGUM BURST MELTAWAY TABS [Suspect]
     Indication: PAIN
     Dosage: 2 TABLETS    5 HR INTERVAL   ORAL
     Route: 048
     Dates: start: 20050124, end: 20050126
  6. JR. TYLENOL   BUBBLEGUM BURST MELTAWAY TABS [Suspect]
     Indication: PYREXIA
     Dosage: 2 TABLETS    5 HR INTERVAL   ORAL
     Route: 048
     Dates: start: 20050124, end: 20050126

REACTIONS (3)
  - COUGH [None]
  - PRURITUS [None]
  - URTICARIA [None]
